FAERS Safety Report 24201985 (Version 1)
Quarter: 2024Q3

REPORT INFORMATION
  Report Type: Spontaneous
  Country: US (occurrence: US)
  Receive Date: 20240812
  Receipt Date: 20240812
  Transmission Date: 20241016
  Serious: No
  Sender: ALKERMES
  Company Number: US-ALKERMES INC.-ALK-2024-002017

PATIENT
  Age: 29 Year
  Sex: Male

DRUGS (2)
  1. LYBALVI [Suspect]
     Active Substance: OLANZAPINE\SAMIDORPHAN L-MALATE
     Indication: Schizoaffective disorder
     Dosage: 20/10 MILLIGRAM, QD
     Route: 048
     Dates: start: 2022
  2. UNSPECIFIED INGREDIENT [Concomitant]
     Active Substance: UNSPECIFIED INGREDIENT
     Indication: Hypothyroidism
     Dosage: UNK
     Route: 065

REACTIONS (5)
  - Off label use [Unknown]
  - Drug ineffective [Unknown]
  - Delusion [Unknown]
  - Sleep disorder [Unknown]
  - Affective disorder [Unknown]
